FAERS Safety Report 6687181 (Version 6)
Quarter: 2013Q2

REPORT INFORMATION
  Report Type: Spontaneous
  Country: US (occurrence: US)
  Receive Date: 20080630
  Receipt Date: 20120515
  Transmission Date: 20140414
  Serious: Yes (Hospitalization, Other)
  Sender: FDA-Public Use
  Company Number: PHEH2008US05589

PATIENT
  Age: 79 Year
  Sex: Female
  Weight: 90.7 kg

DRUGS (23)
  1. ZOMETA [Suspect]
     Dosage: , INJECTION NOS
  2. AREDIA [Suspect]
     Dosage: 90 MG
     Dates: start: 20020307
  3. VANTIN [Concomitant]
     Dosage: 200 PO BID
  4. DIOVAN [Concomitant]
     Dosage: 320 MG QD
  5. LANTUS [Concomitant]
     Dosage: 10 UNITS QHS
  6. PERCOCET [Concomitant]
     Dosage: PRN FOR PAIN
  7. SYNTHROID [Concomitant]
     Dosage: 25 MCG QD
  8. METFORMIN HYDROCHLORIDE [Concomitant]
  9. ZOCOR [Concomitant]
  10. TRICOR [Concomitant]
  11. GLUCOVANCE [Concomitant]
     Dosage: 2 CAPS BID
  12. LEVEMIR [Concomitant]
     Dosage: 10 UNITS HS
  13. DECADRON [Concomitant]
  14. PROTONIX [Concomitant]
  15. AROMASIN [Concomitant]
  16. TAXOL [Concomitant]
     Dosage: 100MG WEEKLY
  17. ZANTAC [Concomitant]
  18. FEMARA [Concomitant]
     Dosage: 1 QD
  19. AVANDIA [Concomitant]
     Dosage: 8 MG QD
  20. ARANESP [Concomitant]
     Dosage: 500 MCG
  21. ADRIAMYCIN [Concomitant]
  22. CYTOXAN [Concomitant]
     Dosage: UNK
     Dates: start: 200812
  23. AMBIEN [Concomitant]
     Dosage: 10 MG

REACTIONS (20)
  - RENAL FAILURE ACUTE [Unknown]
  - DIARRHOEA [Unknown]
  - HYPOVOLAEMIA [Unknown]
  - ASTHENIA [Unknown]
  - Bone cancer [Unknown]
  - BACK PAIN [Unknown]
  - ARTHRALGIA [Unknown]
  - HYPOKINESIA [Unknown]
  - OSTEONECROSIS OF JAW [Unknown]
  - PAIN [Unknown]
  - BONE DISORDER [Unknown]
  - TOOTH INFECTION [Unknown]
  - PAIN IN JAW [Unknown]
  - TOOTH EXTRACTION [Unknown]
  - BREAST CELLULITIS [Unknown]
  - HERPES ZOSTER [Unknown]
  - PNEUMONIA [Unknown]
  - DYSPNOEA [Unknown]
  - URINE OUTPUT DECREASED [Unknown]
  - FALL [Unknown]
